FAERS Safety Report 5142117-2 (Version None)
Quarter: 2006Q4

REPORT INFORMATION
  Report Type: 
  Country: None (occurrence: None)
  Receive Date: 20061102
  Receipt Date: 20061024
  Transmission Date: 20070319
  Serious: Yes (Hospitalization)
  Sender: FDA-Public Use
  Company Number: FR-BRISTOL-MYERS SQUIBB COMPANY-13560990

PATIENT
  Age: 30 Year
  Sex: Female

DRUGS (4)
  1. HOLOXAN [Suspect]
     Indication: HODGKIN'S DISEASE
     Route: 042
     Dates: start: 20060701, end: 20060701
  2. NAVELBINE [Suspect]
     Indication: HODGKIN'S DISEASE
     Route: 042
     Dates: start: 20060701, end: 20060701
  3. MITOGUAZONE [Suspect]
     Indication: HODGKIN'S DISEASE
     Route: 042
     Dates: start: 20060701, end: 20060701
  4. VEPESIDE-SANDOZ [Suspect]
     Indication: HODGKIN'S DISEASE
     Route: 042
     Dates: start: 20060701, end: 20060701

REACTIONS (2)
  - PANNICULITIS [None]
  - PURPURA [None]
